FAERS Safety Report 18120333 (Version 1)
Quarter: 2020Q3

REPORT INFORMATION
  Report Type: Spontaneous
  Country: US (occurrence: US)
  Receive Date: 20200806
  Receipt Date: 20200806
  Transmission Date: 20201103
  Serious: No
  Sender: FDA-Public Use
  Company Number: US-RISING PHARMA HOLDINGS, INC.-2020RIS00253

PATIENT
  Sex: Male

DRUGS (1)
  1. PREGABALIN. [Suspect]
     Active Substance: PREGABALIN
     Dosage: UNK UNK, 3X/DAY
     Route: 048
     Dates: start: 20200515

REACTIONS (5)
  - Insomnia [Unknown]
  - Swelling [Unknown]
  - Speech disorder [Unknown]
  - Unevaluable event [Unknown]
  - Rash [Unknown]

NARRATIVE: CASE EVENT DATE: 2020
